FAERS Safety Report 8050841-7 (Version None)
Quarter: 2012Q1

REPORT INFORMATION
  Report Type: 
  Country: None (occurrence: None)
  Receive Date: 20120117
  Receipt Date: 20120105
  Transmission Date: 20120608
  Serious: Yes (Other)
  Sender: FDA-Public Use
  Company Number: PHHY2009US54648

PATIENT
  Sex: Male

DRUGS (14)
  1. AMLODIPINE [Concomitant]
  2. HYDROCHLOROTHIAZID [Concomitant]
  3. COZAAR [Concomitant]
  4. NEORAL [Suspect]
     Indication: RENAL TRANSPLANT
     Dosage: 150 MG, QD
     Route: 048
  5. MYCOPHENOLATE MOFETIL (CELLCEPT) [Concomitant]
  6. BACTRIM [Concomitant]
  7. ASPIRIN [Concomitant]
  8. PREDNISONE [Concomitant]
  9. PEPCID [Concomitant]
  10. NORVASC [Concomitant]
  11. ATENOLOL [Concomitant]
  12. LIPITOR [Concomitant]
  13. AMOXICILLIN [Concomitant]
  14. ACTONEL [Concomitant]

REACTIONS (1)
  - GINGIVAL HYPERTROPHY [None]
